FAERS Safety Report 10469212 (Version 1)
Quarter: 2014Q3

REPORT INFORMATION
  Report Type: Spontaneous
  Country: DE (occurrence: DE)
  Receive Date: 20140923
  Receipt Date: 20140923
  Transmission Date: 20150326
  Serious: Yes (Other)
  Sender: FDA-Public Use
  Company Number: DE-AMGEN-DEUSP2014072151

PATIENT
  Age: 24 Month
  Sex: Male
  Weight: 11 kg

DRUGS (2)
  1. ENBREL [Suspect]
     Active Substance: ETANERCEPT
     Indication: JUVENILE IDIOPATHIC ARTHRITIS
     Dosage: 10 MG, EVERY 8 DAY
     Route: 058
     Dates: start: 201406
  2. METHOTREXATE (METHOTREXATE SODIUM) [Concomitant]
     Active Substance: METHOTREXATE SODIUM
     Indication: JUVENILE IDIOPATHIC ARTHRITIS
     Dosage: 7.5 MG, WEEKLY
     Route: 058
     Dates: start: 201403

REACTIONS (1)
  - Iris adhesions [Not Recovered/Not Resolved]

NARRATIVE: CASE EVENT DATE: 20140827
